FAERS Safety Report 24768599 (Version 1)
Quarter: 2024Q4

REPORT INFORMATION
  Report Type: Spontaneous
  Country: CO (occurrence: CO)
  Receive Date: 20241224
  Receipt Date: 20241224
  Transmission Date: 20250114
  Serious: Yes (Hospitalization, Other)
  Sender: NOVO NORDISK
  Company Number: CO-NOVOPROD-1337802

PATIENT
  Age: 64 Year
  Sex: Male
  Weight: 86 kg

DRUGS (1)
  1. NOVORAPID [Suspect]
     Active Substance: INSULIN ASPART
     Indication: Type 2 diabetes mellitus
     Dosage: UNK, QD
     Route: 058

REACTIONS (2)
  - Inguinal hernia repair [Unknown]
  - Post procedural infection [Unknown]

NARRATIVE: CASE EVENT DATE: 20240218
